FAERS Safety Report 4471060-7 (Version None)
Quarter: 2004Q4

REPORT INFORMATION
  Report Type: 
  Country: None (occurrence: None)
  Receive Date: 20041011
  Receipt Date: 20040928
  Transmission Date: 20050328
  Serious: Yes (Death)
  Sender: FDA-Public Use
  Company Number: DE-JNJFOC-20041000203

PATIENT
  Age: 72 Year
  Sex: Male

DRUGS (6)
  1. REOPRO [Suspect]
     Route: 042
  2. REOPRO [Suspect]
     Route: 042
  3. AGGRASTAT [Suspect]
  4. AGGRASTAT [Suspect]
     Indication: ANGIOPLASTY
  5. ISCOVER [Concomitant]
     Route: 049
  6. VFH [Concomitant]

REACTIONS (5)
  - CEREBRAL HAEMORRHAGE [None]
  - GASTROINTESTINAL HAEMORRHAGE [None]
  - HAEMOGLOBIN DECREASED [None]
  - PULMONARY HAEMORRHAGE [None]
  - SPLENIC HAEMORRHAGE [None]
